FAERS Safety Report 18898530 (Version 2)
Quarter: 2021Q2

REPORT INFORMATION
  Report Type: Spontaneous
  Country: US (occurrence: US)
  Receive Date: 20210216
  Receipt Date: 20210424
  Transmission Date: 20210717
  Serious: No
  Sender: FDA-Public Use
  Company Number: NVSC2021US033425

PATIENT
  Sex: Female

DRUGS (1)
  1. TAFINLAR [Suspect]
     Active Substance: DABRAFENIB MESYLATE
     Indication: THYROID CANCER
     Dosage: 150 MG, Q12H
     Route: 048
     Dates: start: 20210108

REACTIONS (3)
  - Pain in extremity [Unknown]
  - Fatigue [Unknown]
  - Hyperkeratosis [Unknown]
